FAERS Safety Report 13998757 (Version 1)
Quarter: 2017Q3

REPORT INFORMATION
  Report Type: Not Available
  Country: US (occurrence: US)
  Receive Date: 20170921
  Receipt Date: 20170921
  Transmission Date: 20171128
  Serious: No
  Sender: FDA-Public Use
  Company Number: US-NEUROCRINE BIOSCIENCES INC.-2017NBI00646

PATIENT
  Age: 65 Year
  Sex: Female
  Weight: 90.8 kg

DRUGS (13)
  1. CRESTOR [Concomitant]
     Active Substance: ROSUVASTATIN CALCIUM
  2. SALAGEN [Concomitant]
     Active Substance: PILOCARPINE HYDROCHLORIDE
  3. AMLODIPINE [Concomitant]
     Active Substance: AMLODIPINE BESYLATE
  4. REGLAN [Concomitant]
     Active Substance: METOCLOPRAMIDE HYDROCHLORIDE
  5. MOBIC [Concomitant]
     Active Substance: MELOXICAM
  6. INGREZZA [Suspect]
     Active Substance: VALBENAZINE
     Indication: TARDIVE DYSKINESIA
     Route: 048
     Dates: start: 20170719, end: 20170810
  7. AMBIEN [Concomitant]
     Active Substance: ZOLPIDEM TARTRATE
  8. PROTONIX [Concomitant]
     Active Substance: PANTOPRAZOLE SODIUM
  9. METFORMIN [Concomitant]
     Active Substance: METFORMIN HYDROCHLORIDE
     Indication: DIABETES MELLITUS
  10. SINGULAIR [Concomitant]
     Active Substance: MONTELUKAST SODIUM
  11. ASPIRIN. [Concomitant]
     Active Substance: ASPIRIN
  12. INGREZZA [Suspect]
     Active Substance: VALBENAZINE
     Indication: HUNTINGTON^S DISEASE
     Route: 048
     Dates: start: 20170712, end: 20170718
  13. KLONOPIN [Concomitant]
     Active Substance: CLONAZEPAM

REACTIONS (4)
  - Tardive dyskinesia [Not Recovered/Not Resolved]
  - Drug ineffective [Unknown]
  - Product use in unapproved indication [Unknown]
  - Tremor [Unknown]

NARRATIVE: CASE EVENT DATE: 201707
